FAERS Safety Report 25002865 (Version 1)
Quarter: 2025Q1

REPORT INFORMATION
  Report Type: Report from Study
  Country: US (occurrence: US)
  Receive Date: 20250224
  Receipt Date: 20250224
  Transmission Date: 20250409
  Serious: Yes (Other)
  Sender: ABBVIE
  Company Number: US-ABBVIE-6145244

PATIENT
  Sex: Female

DRUGS (1)
  1. RINVOQ [Suspect]
     Active Substance: UPADACITINIB
     Indication: Rheumatoid arthritis
     Route: 048
     Dates: start: 20240115

REACTIONS (4)
  - Arthropathy [Recovered/Resolved]
  - Meniscus injury [Recovered/Resolved]
  - Parathyroid gland operation [Recovered/Resolved]
  - Arthralgia [Unknown]
